FAERS Safety Report 8360908-1 (Version None)
Quarter: 2012Q2

REPORT INFORMATION
  Report Type: 
  Country: None (occurrence: None)
  Receive Date: 20120515
  Receipt Date: 20120510
  Transmission Date: 20120825
  Serious: Yes (Life-Threatening, Hospitalization, Other)
  Sender: FDA-Public Use
  Company Number: US-BRISTOL-MYERS SQUIBB COMPANY-15894199

PATIENT
  Age: 82 Year
  Sex: Female

DRUGS (9)
  1. TRIAMCINOLONE [Concomitant]
     Dates: start: 20110621, end: 20110630
  2. METFORMIN HCL [Suspect]
     Indication: TYPE 2 DIABETES MELLITUS
  3. MEDROL [Concomitant]
     Dosage: TABS
     Route: 048
     Dates: start: 20110621, end: 20110625
  4. BLINDED: SAXAGLIPTIN [Suspect]
     Indication: TYPE 2 DIABETES MELLITUS
     Dosage: INTERRUPTED:03JUL11
     Dates: start: 20100824
  5. ASPIRIN [Concomitant]
  6. PLACEBO [Suspect]
     Indication: TYPE 2 DIABETES MELLITUS
     Dosage: INTERRUPTED:03JUL11
     Dates: start: 20100824
  7. LISINOPRIL AND HYDROCHLOROTHIAZIDE [Suspect]
  8. CELEBREX [Suspect]
  9. LANTUS [Suspect]
     Indication: TYPE 2 DIABETES MELLITUS

REACTIONS (3)
  - RENAL FAILURE ACUTE [None]
  - FLUID OVERLOAD [None]
  - UROSEPSIS [None]
